FAERS Safety Report 9063468 (Version 1)
Quarter: 2013Q1

REPORT INFORMATION
  Report Type: Report from Study
  Country: US (occurrence: US)
  Receive Date: 20130131
  Receipt Date: 20130131
  Transmission Date: 20140127
  Serious: No
  Sender: FDA-Public Use
  Company Number: US-ABBOTT-12P-163-0966768-00

PATIENT
  Sex: Female
  Weight: 89.44 kg

DRUGS (5)
  1. HUMIRA [Suspect]
     Indication: PSORIASIS
     Route: 058
     Dates: start: 201202, end: 201210
  2. HYDROCHLOROTHIAZIDE [Concomitant]
     Indication: HYPERTENSION
  3. TRAZODONE [Concomitant]
     Indication: SLEEP DISORDER THERAPY
  4. ALPRAZOLAM [Concomitant]
     Indication: PANIC ATTACK
  5. TRAMADOL HCL [Concomitant]

REACTIONS (5)
  - Skin lesion [Not Recovered/Not Resolved]
  - Skin disorder [Not Recovered/Not Resolved]
  - Drug ineffective [Not Recovered/Not Resolved]
  - Pain [Not Recovered/Not Resolved]
  - Psoriasis [Not Recovered/Not Resolved]
